FAERS Safety Report 7447883-9 (Version None)
Quarter: 2011Q2

REPORT INFORMATION
  Report Type: 
  Country: None (occurrence: None)
  Receive Date: 20110429
  Receipt Date: 20100308
  Transmission Date: 20111010
  Serious: No
  Sender: FDA-Public Use
  Company Number: US-ASTRAZENECA-2010SE09946

PATIENT
  Age: 82 Year
  Sex: Male
  Weight: 83.9 kg

DRUGS (3)
  1. COZAAR [Concomitant]
     Indication: BLOOD PRESSURE
  2. LORATADINE [Concomitant]
     Indication: NASAL CONGESTION
  3. NEXIUM [Suspect]
     Indication: GASTROOESOPHAGEAL REFLUX DISEASE
     Route: 048
     Dates: start: 20070101

REACTIONS (3)
  - ARTHRITIS [None]
  - SINUS OPERATION [None]
  - MUSCLE SPASMS [None]
